FAERS Safety Report 8045485-7 (Version None)
Quarter: 2012Q1

REPORT INFORMATION
  Report Type: 
  Country: None (occurrence: None)
  Receive Date: 20120113
  Receipt Date: 20120111
  Transmission Date: 20120608
  Serious: Yes (Other)
  Sender: FDA-Public Use
  Company Number: DE-PFIZER INC-2012007805

PATIENT
  Sex: Female

DRUGS (1)
  1. LYRICA [Suspect]
     Indication: NEURALGIA
     Dosage: 75 MG, 4X/DAY
     Route: 048
     Dates: start: 20110628, end: 20110713

REACTIONS (2)
  - LIVER FUNCTION TEST ABNORMAL [None]
  - LIVER DISORDER [None]
